FAERS Safety Report 5485895-5 (Version None)
Quarter: 2007Q4

REPORT INFORMATION
  Report Type: 
  Country: None (occurrence: None)
  Receive Date: 20071015
  Receipt Date: 20070926
  Transmission Date: 20080405
  Serious: No
  Sender: FDA-Public Use
  Company Number: US-BOEHRINGER INGELHEIM PHARMACEUTICALS, INC.-2007-BP-22365BP

PATIENT

DRUGS (1)
  1. METACAM ORAL SUSPENSION [Suspect]
     Route: 048

REACTIONS (1)
  - ACCIDENTAL EXPOSURE [None]
